FAERS Safety Report 5049855-0 (Version None)
Quarter: 2006Q3

REPORT INFORMATION
  Report Type: 
  Country: None (occurrence: None)
  Receive Date: 20060706
  Receipt Date: 20060627
  Transmission Date: 20061208
  Serious: Yes (Death)
  Sender: FDA-Public Use
  Company Number: USA-2006-0024457

PATIENT
  Age: 40 Year
  Sex: Female
  Weight: 106.6 kg

DRUGS (1)
  1. OXYCONTIN [Suspect]
     Indication: PAIN
     Dosage: 40 MG, BID,

REACTIONS (5)
  - BOWEL MOVEMENT IRREGULARITY [None]
  - COMPLETED SUICIDE [None]
  - DYSPEPSIA [None]
  - GASTROINTESTINAL DISORDER [None]
  - SWELLING [None]
